FAERS Safety Report 9112127 (Version 1)
Quarter: 2013Q1

REPORT INFORMATION
  Report Type: Spontaneous
  Country: US (occurrence: US)
  Receive Date: 20130219
  Receipt Date: 20130219
  Transmission Date: 20140127
  Serious: No
  Sender: FDA-Public Use
  Company Number: US-BRISTOL-MYERS SQUIBB COMPANY-16547762

PATIENT
  Age: 80 Year
  Sex: Female
  Weight: 47.16 kg

DRUGS (5)
  1. ORENCIA FOR INJ [Suspect]
     Dosage: STARTED ON IV 26APR2011. SWITCHED TO SUBQ ON DEC11. LAST: 20APR12. NEW BOX: 1K67562
     Route: 058
     Dates: start: 20110426
  2. PREDNISONE [Concomitant]
  3. SYNTHROID [Concomitant]
  4. TOPROL [Concomitant]
  5. NEXIUM [Concomitant]

REACTIONS (2)
  - Headache [Not Recovered/Not Resolved]
  - Nausea [Unknown]
